FAERS Safety Report 5278504-1 (Version None)
Quarter: 2007Q1

REPORT INFORMATION
  Report Type: 
  Country: None (occurrence: None)
  Receive Date: 20070328
  Receipt Date: 20070315
  Transmission Date: 20070707
  Serious: Yes (Hospitalization)
  Sender: FDA-Public Use
  Company Number: PHEH2006US01702

PATIENT
  Sex: Male

DRUGS (5)
  1. EXJADE [Suspect]
     Indication: BLOOD IRON INCREASED
     Dosage: 1500 MG, QD
     Dates: start: 20060101
  2. EXJADE [Suspect]
     Dosage: 1000 MG, QD
  3. EXJADE [Suspect]
     Dosage: 500 MG, QD
     Dates: end: 20060207
  4. EXJADE [Suspect]
     Dosage: 1000 MG, QD
     Route: 049
     Dates: start: 20060828
  5. EXJADE [Suspect]
     Dosage: 1500 MG, QD
     Route: 048

REACTIONS (7)
  - ABDOMINAL PAIN [None]
  - DIARRHOEA [None]
  - HAEMOGLOBIN DECREASED [None]
  - INFECTION [None]
  - RASH [None]
  - SICKLE CELL ANAEMIA WITH CRISIS [None]
  - URINARY TRACT INFECTION [None]
